FAERS Safety Report 6062340-2 (Version None)
Quarter: 2009Q1

REPORT INFORMATION
  Report Type: 
  Country: None (occurrence: None)
  Receive Date: 20090202
  Receipt Date: 20090202
  Transmission Date: 20090719
  Serious: Yes (Hospitalization)
  Sender: FDA-Public Use
  Company Number: None

PATIENT
  Age: 70 Year
  Sex: Female
  Weight: 62 kg

DRUGS (2)
  1. TOPOTECAN [Suspect]
     Indication: OVARIAN CANCER RECURRENT
     Dosage: 4 MG/M2 WEEKLY X 3 OF 4 IV
     Route: 042
     Dates: start: 20080310, end: 20081013
  2. BEVACIZUMAB [Suspect]
     Indication: OVARIAN CANCER RECURRENT
     Dosage: 10MG/KG DAY 1 + 15 IV
     Route: 042
     Dates: start: 20080310, end: 20081013

REACTIONS (25)
  - CONDITION AGGRAVATED [None]
  - DEHYDRATION [None]
  - EATING DISORDER [None]
  - FOOD INTOLERANCE [None]
  - GASTRIC DISORDER [None]
  - GASTROINTESTINAL DISORDER [None]
  - GASTROINTESTINAL MOTILITY DISORDER [None]
  - GENERAL PHYSICAL HEALTH DETERIORATION [None]
  - HYPOPHAGIA [None]
  - HYPOTENSION [None]
  - IMPAIRED GASTRIC EMPTYING [None]
  - INTERSTITIAL LUNG DISEASE [None]
  - LUNG INFECTION [None]
  - METASTASES TO PLEURA [None]
  - MYOCARDIAL INFARCTION [None]
  - NAUSEA [None]
  - NUTRITIONAL CONDITION ABNORMAL [None]
  - OVARIAN CANCER METASTATIC [None]
  - PLEURAL EFFUSION [None]
  - PNEUMONIA [None]
  - PNEUMONITIS [None]
  - PULMONARY OEDEMA [None]
  - RESPIRATORY FAILURE [None]
  - VOMITING [None]
  - WEIGHT DECREASED [None]
